FAERS Safety Report 8143743-9 (Version None)
Quarter: 2012Q1

REPORT INFORMATION
  Report Type: 
  Country: None (occurrence: None)
  Receive Date: 20120217
  Receipt Date: 20120210
  Transmission Date: 20120608
  Serious: Yes (Hospitalization)
  Sender: FDA-Public Use
  Company Number: US-BAYER-2011-033890

PATIENT
  Age: 45 Year
  Sex: Female
  Weight: 65.76 kg

DRUGS (4)
  1. YAZ [Suspect]
     Indication: ACNE
     Dosage: UNK
     Route: 048
     Dates: start: 20090201, end: 20090309
  2. VALTREX [Concomitant]
  3. ERYTHROMYCIN ES PFIZER [Concomitant]
     Dosage: 400 MG, BID
  4. IBUPROFEN (ADVIL) [Concomitant]

REACTIONS (10)
  - PAIN [None]
  - ANHEDONIA [None]
  - AMNESIA [None]
  - CONVULSION [None]
  - CEREBROVASCULAR ACCIDENT [None]
  - DYSARTHRIA [None]
  - ANXIETY [None]
  - DEEP VEIN THROMBOSIS [None]
  - DEPRESSION [None]
  - HEMIPLEGIA [None]
